FAERS Safety Report 7097343-2 (Version None)
Quarter: 2010Q4

REPORT INFORMATION
  Report Type: 
  Country: None (occurrence: None)
  Receive Date: 20101111
  Receipt Date: 20101109
  Transmission Date: 20110411
  Serious: Yes (Other)
  Sender: FDA-Public Use
  Company Number: AU-PFIZER INC-2010144116

PATIENT
  Age: 70 Year
  Sex: Male

DRUGS (3)
  1. NORVASC [Suspect]
     Indication: HYPERTENSION
     Dosage: 5 MG, 1X/DAY
     Route: 048
  2. AVAPRO [Concomitant]
     Dosage: 150 MG, UNK
  3. METFORMIN [Concomitant]
     Dosage: 500 MG, 2X/DAY

REACTIONS (1)
  - HYPERKALAEMIA [None]
